FAERS Safety Report 18814198 (Version 1)
Quarter: 2021Q1

REPORT INFORMATION
  Report Type: Report from Study
  Country: None (occurrence: US)
  Receive Date: 20210201
  Receipt Date: 20210201
  Transmission Date: 20210419
  Serious: Yes (Other)
  Sender: FDA-Public Use
  Company Number: US-ABBVIE-21K-163-3727321-00

PATIENT
  Sex: Male
  Weight: 122.58 kg

DRUGS (20)
  1. CELEXA [Concomitant]
     Active Substance: CITALOPRAM HYDROBROMIDE
     Indication: DEPRESSION
  2. METHOTREXATE. [Concomitant]
     Active Substance: METHOTREXATE
     Indication: RHEUMATOID ARTHRITIS
  3. FOLIC ACID. [Concomitant]
     Active Substance: FOLIC ACID
     Indication: SUPPLEMENTATION THERAPY
  4. DIAZEPAM. [Concomitant]
     Active Substance: DIAZEPAM
     Indication: TREMOR
  5. FLECAINIDE [Concomitant]
     Active Substance: FLECAINIDE
     Indication: CARDIAC DISORDER
  6. ZINC. [Concomitant]
     Active Substance: ZINC
     Indication: SUPPLEMENTATION THERAPY
  7. ASPIRIN. [Concomitant]
     Active Substance: ASPIRIN
     Indication: CARDIAC DISORDER
  8. LEVOTHYROXINE. [Concomitant]
     Active Substance: LEVOTHYROXINE
     Indication: THYROID DISORDER
  9. DOXYCYCLINE. [Concomitant]
     Active Substance: DOXYCYCLINE
     Indication: PRODUCT USED FOR UNKNOWN INDICATION
  10. LASIX [Concomitant]
     Active Substance: FUROSEMIDE
     Indication: FLUID RETENTION
  11. METFORMIN [Concomitant]
     Active Substance: METFORMIN HYDROCHLORIDE
     Indication: DIABETES MELLITUS
  12. IRON [Concomitant]
     Active Substance: IRON
     Indication: SUPPLEMENTATION THERAPY
  13. HYDROCODONE [Concomitant]
     Active Substance: HYDROCODONE
     Indication: PAIN
  14. PRIMIDONE. [Concomitant]
     Active Substance: PRIMIDONE
     Indication: ESSENTIAL TREMOR
  15. LISINOPRIL. [Concomitant]
     Active Substance: LISINOPRIL
     Indication: BLOOD PRESSURE MEASUREMENT
  16. HUMIRA [Suspect]
     Active Substance: ADALIMUMAB
     Indication: RHEUMATOID ARTHRITIS
     Route: 058
     Dates: start: 2017
  17. GEMFIBROZIL. [Concomitant]
     Active Substance: GEMFIBROZIL
     Indication: CARDIAC DISORDER
  18. VITAMIN D NOS [Concomitant]
     Active Substance: VITAMIN D NOS
     Indication: SUPPLEMENTATION THERAPY
  19. PANTOPRAZOLE [Concomitant]
     Active Substance: PANTOPRAZOLE
     Indication: GASTROOESOPHAGEAL REFLUX DISEASE
  20. VITAMIN C [Concomitant]
     Active Substance: ASCORBIC ACID
     Indication: SUPPLEMENTATION THERAPY

REACTIONS (4)
  - Unevaluable event [Unknown]
  - Pain [Unknown]
  - Rheumatoid arthritis [Not Recovered/Not Resolved]
  - Diabetes mellitus [Recovering/Resolving]

NARRATIVE: CASE EVENT DATE: 2019
